FAERS Safety Report 9405647 (Version 1)
Quarter: 2013Q3

REPORT INFORMATION
  Report Type: Spontaneous
  Country: US (occurrence: US)
  Receive Date: 20130717
  Receipt Date: 20130717
  Transmission Date: 20140515
  Serious: Yes (Hospitalization, Other)
  Sender: FDA-Public Use
  Company Number: CHPA2013US010973

PATIENT
  Age: 48 Year
  Sex: Female

DRUGS (4)
  1. EXCEDRIN MIGRAINE [Suspect]
     Indication: HEADACHE
     Dosage: UNK, UNK
     Route: 048
  2. XANAX [Concomitant]
     Indication: ANXIETY
  3. IMDUR [Concomitant]
     Indication: PALPITATIONS
     Dosage: 15 MG, QD
     Route: 048
  4. IMDUR [Concomitant]
     Dosage: 30 MG, QD
     Route: 048
     Dates: start: 20130624

REACTIONS (16)
  - Pulmonary oedema [Recovered/Resolved]
  - Convulsion [Recovered/Resolved]
  - Breast cancer [Recovered/Resolved]
  - Systemic lupus erythematosus [Not Recovered/Not Resolved]
  - Skin disorder [Not Recovered/Not Resolved]
  - Inflammation [Not Recovered/Not Resolved]
  - Cyst [Not Recovered/Not Resolved]
  - Tooth loss [Recovered/Resolved]
  - Road traffic accident [Recovered/Resolved]
  - Cognitive disorder [Not Recovered/Not Resolved]
  - Reading disorder [Unknown]
  - Muscle spasms [Not Recovered/Not Resolved]
  - Mastication disorder [Unknown]
  - Chest pain [Unknown]
  - Therapeutic response unexpected [Unknown]
  - Off label use [Unknown]
